FAERS Safety Report 8607329-1 (Version None)
Quarter: 2012Q3

REPORT INFORMATION
  Report Type: 
  Country: None (occurrence: None)
  Receive Date: 20120801
  Receipt Date: 20120723
  Transmission Date: 20120928
  Serious: Yes (Other)
  Sender: FDA-Public Use
  Company Number: ADR-2012-01211

PATIENT
  Age: 26 Year
  Sex: Female

DRUGS (2)
  1. MORPHINE [Concomitant]
  2. BACLOFEN [Suspect]
     Dosage: 740.0 MCG/DAY

REACTIONS (8)
  - MUSCLE RIGIDITY [None]
  - CONVULSION [None]
  - SPINAL COLUMN STENOSIS [None]
  - MUSCLE SPASTICITY [None]
  - UNDERDOSE [None]
  - DEVICE DISLOCATION [None]
  - CRYING [None]
  - DEVICE DAMAGE [None]
